FAERS Safety Report 7993914-7 (Version None)
Quarter: 2011Q4

REPORT INFORMATION
  Report Type: 
  Country: None (occurrence: None)
  Receive Date: 20111215
  Receipt Date: 20110822
  Transmission Date: 20120403
  Serious: Yes (Hospitalization)
  Sender: FDA-Public Use
  Company Number: 2011-240

PATIENT
  Age: 32 Year
  Sex: Male
  Weight: 104 kg

DRUGS (6)
  1. VENLAFAXINE HCL [Concomitant]
  2. TARGIN (NALOXONE HYDROCHLORIDE, OXYCODONE HYDROCHLORIDE) [Concomitant]
  3. MORPHINE SULFATE INJ [Concomitant]
  4. BISOPHEXAL (BISOPROLOL FUMARATE) [Concomitant]
  5. PRIALT [Suspect]
     Indication: PAIN
     Dosage: 0.15 UG, ONCE/HOUR, INTRATHECAL ; 0.06 UG, ONCE/HOUR, INTRATHECAL ; 0.03 UG, ONCE/HOUR, INTRATHECAL
     Route: 037
     Dates: start: 20100622, end: 20110526
  6. MIRTAZAPINE [Concomitant]

REACTIONS (10)
  - RESTLESSNESS [None]
  - DIZZINESS [None]
  - NAUSEA [None]
  - DYSPHEMIA [None]
  - VISION BLURRED [None]
  - BURNING SENSATION [None]
  - ANXIETY [None]
  - PRURITUS GENERALISED [None]
  - TREMOR [None]
  - TOXICITY TO VARIOUS AGENTS [None]
